FAERS Safety Report 8611526-9 (Version None)
Quarter: 2012Q3

REPORT INFORMATION
  Report Type: 
  Country: None (occurrence: None)
  Receive Date: 20120809
  Receipt Date: 20120725
  Transmission Date: 20120928
  Serious: Yes (Death, Other)
  Sender: FDA-Public Use
  Company Number: 2012MA009141

PATIENT
  Age: 38 Year
  Sex: Female

DRUGS (10)
  1. LISINOPRIL [Suspect]
     Indication: INTENTIONAL OVERDOSE
     Dosage: PO
     Route: 048
  2. ETHANOL [Suspect]
     Indication: INTENTIONAL OVERDOSE
     Dosage: PO
     Route: 048
  3. CODEINE SULFATE [Suspect]
     Indication: INTENTIONAL OVERDOSE
     Dosage: PO
     Route: 048
  4. PROPOXYPHENE HCL [Suspect]
     Indication: INTENTIONAL OVERDOSE
     Dosage: PO
     Route: 048
  5. KADIAN [Suspect]
     Indication: INTENTIONAL OVERDOSE
     Dosage: PO
     Route: 048
  6. KADIAN [Suspect]
     Indication: COMPLETED SUICIDE
     Dosage: PO
     Route: 048
  7. DIAZEPAM [Suspect]
     Indication: INTENTIONAL OVERDOSE
     Dosage: PO
     Route: 048
  8. METHADONE HCL [Suspect]
     Indication: INTENTIONAL OVERDOSE
     Dosage: PO
     Route: 048
  9. SERTRALINE HYDROCHLORIDE [Suspect]
     Indication: INTENTIONAL OVERDOSE
     Dosage: PO
     Route: 048
  10. HYDROCODONE [Suspect]
     Indication: INTENTIONAL OVERDOSE
     Dosage: PO
     Route: 048

REACTIONS (3)
  - ALCOHOL POISONING [None]
  - COMPLETED SUICIDE [None]
  - TOXICITY TO VARIOUS AGENTS [None]
